FAERS Safety Report 24119456 (Version 1)
Quarter: 2024Q3

REPORT INFORMATION
  Report Type: Spontaneous
  Country: US (occurrence: US)
  Receive Date: 20240722
  Receipt Date: 20240722
  Transmission Date: 20241017
  Serious: No
  Sender: MERCK
  Company Number: US-009507513-2407USA009676

PATIENT
  Age: 8 Decade
  Sex: Male

DRUGS (1)
  1. VERQUVO [Suspect]
     Active Substance: VERICIGUAT
     Indication: Left ventricular failure
     Dosage: 5 MILLIGRAM
     Route: 048

REACTIONS (2)
  - Dyspnoea [Recovered/Resolved]
  - Ejection fraction abnormal [Unknown]
